FAERS Safety Report 4830023-X (Version None)
Quarter: 2005Q4

REPORT INFORMATION
  Report Type: 
  Country: None (occurrence: None)
  Receive Date: 20051117
  Receipt Date: 20051108
  Transmission Date: 20060501
  Serious: Yes (Hospitalization)
  Sender: FDA-Public Use
  Company Number: GB-BRISTOL-MYERS SQUIBB COMPANY-13173562

PATIENT
  Age: 70 Year
  Sex: Female

DRUGS (3)
  1. CETUXIMAB [Suspect]
     Indication: NON-SMALL CELL LUNG CANCER
     Route: 041
     Dates: start: 20050527
  2. CISPLATIN [Suspect]
     Indication: NON-SMALL CELL LUNG CANCER
     Route: 042
     Dates: start: 20050527
  3. VINORELBINE [Suspect]
     Indication: NON-SMALL CELL LUNG CANCER
     Route: 042
     Dates: start: 20050527

REACTIONS (1)
  - LUNG INFECTION [None]
